FAERS Safety Report 20371356 (Version 1)
Quarter: 2022Q1

REPORT INFORMATION
  Report Type: Spontaneous
  Country: US (occurrence: None)
  Receive Date: 20220122
  Receipt Date: 20220122
  Transmission Date: 20220423
  Serious: Yes (Other)
  Sender: FDA-Public Use
  Company Number: None

PATIENT
  Age: 49 Year
  Sex: Female

DRUGS (1)
  1. BAMLANIVIMAB\ETESEVIMAB [Suspect]
     Active Substance: BAMLANIVIMAB\ETESEVIMAB

REACTIONS (4)
  - Dizziness [None]
  - Oropharyngeal discomfort [None]
  - Pallor [None]
  - Hyperhidrosis [None]

NARRATIVE: CASE EVENT DATE: 20220122
